FAERS Safety Report 4927333-4 (Version None)
Quarter: 2006Q1

REPORT INFORMATION
  Report Type: 
  Country: None (occurrence: None)
  Receive Date: 20060228
  Receipt Date: 20050804
  Transmission Date: 20060701
  Serious: No
  Sender: FDA-Public Use
  Company Number: US-GLAXOSMITHKLINE-A0569274A

PATIENT
  Age: 39 Year
  Sex: Female

DRUGS (2)
  1. IMITREX [Suspect]
     Indication: DRUG USE FOR UNKNOWN INDICATION
  2. OVCON-35 [Concomitant]

REACTIONS (2)
  - HEART RATE INCREASED [None]
  - NIGHTMARE [None]
